FAERS Safety Report 11054530 (Version 10)
Quarter: 2016Q1

REPORT INFORMATION
  Report Type: Report from Study
  Country: US (occurrence: US)
  Receive Date: 20150422
  Receipt Date: 20160113
  Transmission Date: 20160525
  Serious: Yes (Hospitalization, Other)
  Sender: FDA-Public Use
  Company Number: US-SA-2014SA161843

PATIENT
  Age: 51 Year
  Sex: Female

DRUGS (6)
  1. CIPRO [Concomitant]
     Active Substance: CIPROFLOXACIN HYDROCHLORIDE
  2. PREDNISONE. [Concomitant]
     Active Substance: PREDNISONE
  3. AUGMENTIN [Concomitant]
     Active Substance: AMOXICILLIN\CLAVULANATE POTASSIUM
  4. AUBAGIO [Suspect]
     Active Substance: TERIFLUNOMIDE
     Indication: MULTIPLE SCLEROSIS
     Route: 048
     Dates: start: 20141114
  5. AUBAGIO [Suspect]
     Active Substance: TERIFLUNOMIDE
     Indication: MULTIPLE SCLEROSIS
     Route: 048
  6. AMPYRA [Concomitant]
     Active Substance: DALFAMPRIDINE
     Dates: start: 20141101

REACTIONS (16)
  - Fall [Not Recovered/Not Resolved]
  - Urinary incontinence [Unknown]
  - Multiple sclerosis relapse [Not Recovered/Not Resolved]
  - Intrathecal pump insertion [Unknown]
  - Muscular weakness [Unknown]
  - Eye infection [Recovering/Resolving]
  - Alopecia [Not Recovered/Not Resolved]
  - Ill-defined disorder [Unknown]
  - Drug dose omission [Unknown]
  - Mobility decreased [Not Recovered/Not Resolved]
  - Cerebrospinal fluid leakage [Recovering/Resolving]
  - Productive cough [Unknown]
  - Diarrhoea [Recovering/Resolving]
  - Dysstasia [Not Recovered/Not Resolved]
  - Nasopharyngitis [Unknown]
  - Fatigue [Unknown]

NARRATIVE: CASE EVENT DATE: 20141116
